FAERS Safety Report 8733983 (Version 2)
Quarter: 2012Q4

REPORT INFORMATION
  Report Type: 
  Country: US (occurrence: US)
  Receive Date: 20120821
  Receipt Date: 20120917
  Transmission Date: 20130627
  Serious: Yes (Other)
  Sender: FDA-Public Use
  Company Number: US-SANOFI-AVENTIS-2012SA058409

PATIENT
  Age: 70 Year
  Sex: Female
  Weight: 51.26 kg

DRUGS (11)
  1. FEXOFENADINE HYDROCHLORIDE [Suspect]
     Indication: HEADACHE
     Dosage: She is switching between 180mg daily, twice a day, and 60mg daily
     Route: 048
     Dates: start: 201206
  2. FEXOFENADINE HYDROCHLORIDE [Suspect]
     Indication: FEVER
     Dosage: She is switching between 180mg daily, twice a day, and 60mg daily
     Route: 048
     Dates: start: 201206
  3. FEXOFENADINE HYDROCHLORIDE [Suspect]
     Indication: ALLERGIC RASH
     Dosage: She is switching between 180mg daily, twice a day, and 60mg daily
     Route: 048
     Dates: start: 201206
  4. TRAVATAN [Concomitant]
     Indication: GLAUCOMA
     Dosage: 1 drop in each eye daily
     Dates: start: 20100625
  5. XALATAN [Concomitant]
  6. LITHIUM CARBONATE [Concomitant]
     Indication: MANIC DEPRESSION
     Dates: start: 1976, end: 1977
  7. LITHIUM CARBONATE [Concomitant]
     Indication: MANIC DEPRESSION
     Dates: start: 1992, end: 1998
  8. LITHIUM CARBONATE [Concomitant]
     Indication: MANIC DEPRESSION
     Dates: start: 2003, end: 2010
  9. LITHIUM CARBONATE [Concomitant]
     Indication: MANIC DEPRESSION
  10. AMBIEN [Concomitant]
     Indication: INSOMNIA
     Dates: start: 2009
  11. XANAX [Concomitant]
     Dosage: occassionally.
     Dates: start: 201011

REACTIONS (10)
  - Open angle glaucoma [Unknown]
  - Neck pain [Not Recovered/Not Resolved]
  - Arthritis [Unknown]
  - Toothache [Unknown]
  - Oral pain [Unknown]
  - Poor quality sleep [Unknown]
  - Dizziness [Unknown]
  - Back pain [Not Recovered/Not Resolved]
  - Somnolence [Not Recovered/Not Resolved]
  - Overdose [Unknown]
